FAERS Safety Report 4317750-8 (Version None)
Quarter: 2004Q1

REPORT INFORMATION
  Report Type: 
  Country: None (occurrence: None)
  Receive Date: 20040315
  Receipt Date: 20020926
  Transmission Date: 20041129
  Serious: Yes (Hospitalization)
  Sender: FDA-Public Use
  Company Number: 12054714

PATIENT
  Age: 19 Year
  Sex: Male

DRUGS (13)
  1. EFAVIRENZ CAPS [Suspect]
     Indication: HIV INFECTION
     Dosage: STOPPED 20-SEP-2002 RESTARTED 13-MAR-2003.
     Route: 048
     Dates: start: 20001114
  2. VIDEX [Suspect]
     Indication: ACQUIRED IMMUNODEFICIENCY SYNDROME
     Route: 048
     Dates: start: 19991001, end: 20000502
  3. ZERIT [Suspect]
     Indication: ACQUIRED IMMUNODEFICIENCY SYNDROME
     Dosage: STOPPED FEB 17-1999, RESTARTED 12-SEP-1999
     Route: 048
     Dates: start: 19970911, end: 20020920
  4. INVIRASE [Suspect]
     Indication: ACQUIRED IMMUNODEFICIENCY SYNDROME
     Route: 048
     Dates: start: 19990902, end: 20001113
  5. NORVIR [Suspect]
     Indication: ACQUIRED IMMUNODEFICIENCY SYNDROME
     Route: 048
     Dates: start: 19990902, end: 20001113
  6. LAMIVUDINE [Suspect]
     Indication: HIV INFECTION
     Dosage: STOPPED 31OCT1999 STARTED 26JUN2000 TO 28JAN2000, STOPPED 20SEP2002 RESTARTED 27FEB2003
     Route: 048
     Dates: start: 19981101
  7. LOXONIN [Concomitant]
     Route: 048
     Dates: start: 19970901
  8. SELBEX [Concomitant]
     Route: 048
     Dates: start: 19970901
  9. DIFLUCAN [Concomitant]
     Route: 048
     Dates: start: 19950302
  10. BAKTAR [Concomitant]
     Indication: PROPHYLAXIS
     Route: 048
     Dates: start: 19950422
  11. FACTOR IX COMPLEX [Concomitant]
     Dates: start: 19981101, end: 20000502
  12. ZIDOVUDINE [Concomitant]
     Dates: start: 20030227
  13. CAMOSTAT MESYLATE [Concomitant]

REACTIONS (5)
  - CHOLANGITIS [None]
  - DIABETES MELLITUS [None]
  - HYPERLIPIDAEMIA [None]
  - JAUNDICE CHOLESTATIC [None]
  - PANCREATITIS HAEMORRHAGIC [None]
